FAERS Safety Report 24724014 (Version 1)
Quarter: 2024Q4

REPORT INFORMATION
  Report Type: Spontaneous
  Country: GR (occurrence: GR)
  Receive Date: 20241211
  Receipt Date: 20241211
  Transmission Date: 20250115
  Serious: Yes (Other)
  Sender: ALEXION PHARMACEUTICALS
  Company Number: GR-ASTRAZENECA-202412GLO008182GR

PATIENT
  Age: 45 Year
  Weight: 65 kg

DRUGS (16)
  1. QUETIAPINE FUMARATE [Suspect]
     Active Substance: QUETIAPINE FUMARATE
     Route: 065
  2. QUETIAPINE FUMARATE [Suspect]
     Active Substance: QUETIAPINE FUMARATE
     Route: 065
  3. QUETIAPINE FUMARATE [Suspect]
     Active Substance: QUETIAPINE FUMARATE
     Route: 065
  4. QUETIAPINE FUMARATE [Suspect]
     Active Substance: QUETIAPINE FUMARATE
     Route: 065
  5. ABILIFY [Suspect]
     Active Substance: ARIPIPRAZOLE
     Indication: Bipolar disorder
     Dosage: UNK
     Route: 048
  6. ABILIFY [Suspect]
     Active Substance: ARIPIPRAZOLE
     Dosage: UNK
  7. LAMICTAL [Suspect]
     Active Substance: LAMOTRIGINE
     Indication: Bipolar disorder
     Dosage: 2 DOSAGE FORM
     Route: 048
  8. LAMICTAL [Suspect]
     Active Substance: LAMOTRIGINE
     Dosage: 2 DOSAGE FORM
  9. CLONAZEPAM [Suspect]
     Active Substance: CLONAZEPAM
     Indication: Bipolar disorder
     Route: 048
  10. CLONAZEPAM [Suspect]
     Active Substance: CLONAZEPAM
  11. CLONAZEPAM [Suspect]
     Active Substance: CLONAZEPAM
     Route: 048
  12. CLONAZEPAM [Suspect]
     Active Substance: CLONAZEPAM
  13. FLUCONAZOLE [Suspect]
     Active Substance: FLUCONAZOLE
     Route: 048
  14. FLUCONAZOLE [Suspect]
     Active Substance: FLUCONAZOLE
  15. ESTRADIOL VALERATE\NORGESTREL [Suspect]
     Active Substance: ESTRADIOL VALERATE\NORGESTREL
     Route: 065
  16. ESTRADIOL VALERATE\NORGESTREL [Suspect]
     Active Substance: ESTRADIOL VALERATE\NORGESTREL
     Route: 065

REACTIONS (9)
  - Fluid retention [Recovering/Resolving]
  - Lichen planus [Recovering/Resolving]
  - Cyst [Recovering/Resolving]
  - Generalised oedema [Recovering/Resolving]
  - Blood cholesterol increased [Recovering/Resolving]
  - Vomiting [Recovering/Resolving]
  - Flatulence [Recovering/Resolving]
  - Blood pressure decreased [Recovering/Resolving]
  - Polyp [Recovering/Resolving]
